FAERS Safety Report 18284539 (Version 1)
Quarter: 2020Q3

REPORT INFORMATION
  Report Type: Spontaneous
  Country: FR (occurrence: FR)
  Receive Date: 20200918
  Receipt Date: 20200918
  Transmission Date: 20201103
  Serious: Yes (Hospitalization, Other)
  Sender: FDA-Public Use
  Company Number: FR-INDIVIOR US-INDV-126390-2020

PATIENT
  Age: 34 Year
  Sex: Male
  Weight: 65 kg

DRUGS (1)
  1. SUBUTEX [Suspect]
     Active Substance: BUPRENORPHINE HYDROCHLORIDE
     Indication: PRODUCT USED FOR UNKNOWN INDICATION
     Dosage: 8 MILLIGRAM, UNKNOWN
     Route: 042
     Dates: start: 2018, end: 202007

REACTIONS (6)
  - Intentional product use issue [Recovering/Resolving]
  - Drug use disorder [Recovering/Resolving]
  - Malaise [Recovered/Resolved]
  - Sepsis [Recovered/Resolved]
  - Hypothermia [Recovered/Resolved]
  - Substance abuse [Recovering/Resolving]

NARRATIVE: CASE EVENT DATE: 2018
